FAERS Safety Report 13819504 (Version 1)
Quarter: 2017Q3

REPORT INFORMATION
  Report Type: Report from Study
  Country: US (occurrence: US)
  Receive Date: 20170731
  Receipt Date: 20170731
  Transmission Date: 20171127
  Serious: No
  Sender: FDA-Public Use
  Company Number: US-EXELIXIS-CABO-17009208

PATIENT
  Sex: Male
  Weight: 66.21 kg

DRUGS (20)
  1. CABOMETYX [Suspect]
     Active Substance: CABOZANTINIB S-MALATE
     Indication: RENAL CELL CARCINOMA
     Dosage: 60 MG, QD
     Route: 048
     Dates: start: 20170419
  2. OXYCODONE [Concomitant]
     Active Substance: OXYCODONE
  3. LANTUS [Concomitant]
     Active Substance: INSULIN GLARGINE
  4. BENZONATATE. [Concomitant]
     Active Substance: BENZONATATE
  5. LIDOCAINE. [Concomitant]
     Active Substance: LIDOCAINE
  6. NOVOLOG [Concomitant]
     Active Substance: INSULIN ASPART
  7. IBUPROFEN. [Concomitant]
     Active Substance: IBUPROFEN
  8. POLYETHYLENE GLYCOL [Concomitant]
     Active Substance: POLYETHYLENE GLYCOLS
  9. GUAIFENESIN. [Concomitant]
     Active Substance: GUAIFENESIN
  10. IPRATROPIUM BROMIDE. [Concomitant]
     Active Substance: IPRATROPIUM BROMIDE
  11. OPDIVO [Concomitant]
     Active Substance: NIVOLUMAB
  12. TYLENOL [Concomitant]
     Active Substance: ACETAMINOPHEN
  13. CALCIUM [Concomitant]
     Active Substance: CALCIUM
  14. LIDOCAINE PRILOCAINE BIOGARAN [Concomitant]
  15. CALCITRIOL. [Concomitant]
     Active Substance: CALCITRIOL
  16. RENAGEL [Concomitant]
     Active Substance: SEVELAMER HYDROCHLORIDE
  17. ALBUTEROL. [Concomitant]
     Active Substance: ALBUTEROL
  18. HYDROMORPHONE [Concomitant]
     Active Substance: HYDROMORPHONE
  19. TAMSULOSIN [Concomitant]
     Active Substance: TAMSULOSIN
  20. ATENOLOL. [Concomitant]
     Active Substance: ATENOLOL

REACTIONS (1)
  - Flatulence [Unknown]
